FAERS Safety Report 19140546 (Version 1)
Quarter: 2021Q2

REPORT INFORMATION
  Report Type: Spontaneous
  Country: AU (occurrence: AU)
  Receive Date: 20210415
  Receipt Date: 20210415
  Transmission Date: 20210717
  Serious: Yes (Other)
  Sender: FDA-Public Use
  Company Number: AU-PFIZER INC-2021402292

PATIENT
  Age: 32 Year
  Sex: Male

DRUGS (1)
  1. VIBRAMYCIN [Suspect]
     Active Substance: DOXYCYCLINE
     Dosage: UNK
     Route: 048

REACTIONS (4)
  - Oesophagitis [Recovering/Resolving]
  - Chest pain [Recovering/Resolving]
  - Oesophageal ulcer [Recovering/Resolving]
  - Wrong technique in product usage process [Unknown]
